FAERS Safety Report 8360568-X (Version None)
Quarter: 2012Q2

REPORT INFORMATION
  Report Type: 
  Country: None (occurrence: None)
  Receive Date: 20120515
  Receipt Date: 20120511
  Transmission Date: 20120825
  Serious: Yes (Hospitalization, Other)
  Sender: FDA-Public Use
  Company Number: PHEH2012US008501

PATIENT
  Sex: Female
  Weight: 68.027 kg

DRUGS (1)
  1. GILENYA [Suspect]
     Indication: MULTIPLE SCLEROSIS
     Dosage: 0.5 MG, QD
     Route: 048
     Dates: start: 20110923, end: 20120418

REACTIONS (3)
  - BREAST MASS [None]
  - BREAST CANCER STAGE II [None]
  - SOMNOLENCE [None]
